FAERS Safety Report 5091133-8 (Version None)
Quarter: 2006Q3

REPORT INFORMATION
  Report Type: 
  Country: None (occurrence: None)
  Receive Date: 20060727
  Receipt Date: 20060405
  Transmission Date: 20061208
  Serious: Yes (Other)
  Sender: FDA-Public Use
  Company Number: 2006047179

PATIENT
  Age: 19 Year
  Sex: Female

DRUGS (1)
  1. LYRICA [Suspect]
     Indication: EPILEPSY
     Dosage: 300 MG (150 MG,2 IN 1 D)
     Dates: start: 20051201, end: 20060404

REACTIONS (6)
  - CHEST DISCOMFORT [None]
  - EYE SWELLING [None]
  - GASTROENTERITIS VIRAL [None]
  - ORAL DISCOMFORT [None]
  - PRURITUS [None]
  - URTICARIA [None]
